FAERS Safety Report 17551028 (Version 1)
Quarter: 2020Q1

REPORT INFORMATION
  Report Type: Spontaneous
  Country: US (occurrence: US)
  Receive Date: 20200317
  Receipt Date: 20200317
  Transmission Date: 20200409
  Serious: Yes (Other)
  Sender: FDA-Public Use
  Company Number: US-ASTELLAS-2019US017221

PATIENT
  Age: 59 Year
  Sex: Female

DRUGS (2)
  1. CRESEMBA [Suspect]
     Active Substance: ISAVUCONAZONIUM SULFATE
     Route: 065
     Dates: start: 20190226, end: 20190402
  2. CRESEMBA [Suspect]
     Active Substance: ISAVUCONAZONIUM SULFATE
     Indication: ASPERGILLUS INFECTION
     Route: 065
     Dates: start: 20181217, end: 20190205

REACTIONS (3)
  - Blood triglycerides increased [Unknown]
  - Hepatic enzyme increased [Recovered/Resolved]
  - Weight decreased [Unknown]
